FAERS Safety Report 5188288-3 (Version None)
Quarter: 2006Q4

REPORT INFORMATION
  Report Type: 
  Country: None (occurrence: None)
  Receive Date: 20061221
  Receipt Date: 20061218
  Transmission Date: 20070319
  Serious: Yes (Life-Threatening)
  Sender: FDA-Public Use
  Company Number: 2006JP005262

PATIENT
  Age: 56 Year
  Sex: Female

DRUGS (5)
  1. CEFAZOLIN [Suspect]
     Indication: DRUG USE FOR UNKNOWN INDICATION
     Route: 042
  2. MIDAZOLAM HYDROCHLORIDE [Suspect]
     Indication: ANXIETY DISORDER
     Route: 042
  3. ESMERON [Suspect]
     Indication: DRUG USE FOR UNKNOWN INDICATION
     Dosage: 40MG PER DAY
     Route: 042
  4. FENTANYL [Suspect]
     Indication: SENSORY DISTURBANCE
     Route: 042
  5. PROPOFOL [Suspect]
     Indication: DRUG USE FOR UNKNOWN INDICATION
     Route: 042

REACTIONS (2)
  - ANAPHYLACTIC REACTION [None]
  - HYPOTENSION [None]
